FAERS Safety Report 4817371-4 (Version None)
Quarter: 2005Q4

REPORT INFORMATION
  Report Type: 
  Country: None (occurrence: None)
  Receive Date: 20051031
  Receipt Date: 20051021
  Transmission Date: 20060501
  Serious: Yes (Hospitalization)
  Sender: FDA-Public Use
  Company Number: 2005-10-1360

PATIENT
  Sex: Female

DRUGS (8)
  1. ALBUTEROL SULFATE AUTOHALER [Suspect]
     Dosage: ORAL AER INH
     Route: 055
  2. ALBUTEROL SULFATE AUTOHALER [Suspect]
  3. PROVENTIL [Suspect]
     Dosage: ORAL AER INH
     Route: 055
  4. VENTOLIN [Suspect]
  5. ALBUTEROL [Suspect]
     Dosage: ORAL AER INH
     Route: 055
  6. ALBUTEROL [Suspect]
  7. VENTOLIN [Suspect]
  8. VENTOLIN [Suspect]

REACTIONS (1)
  - GASTRIC OPERATION [None]
